FAERS Safety Report 9796219 (Version 2)
Quarter: 2014Q1

REPORT INFORMATION
  Report Type: Spontaneous
  Country: US (occurrence: US)
  Receive Date: 20140103
  Receipt Date: 20140318
  Transmission Date: 20141002
  Serious: Yes (Other)
  Sender: FDA-Public Use
  Company Number: US-PFIZER INC-2013374482

PATIENT
  Age: 88 Year
  Sex: Female

DRUGS (2)
  1. REVATIO [Suspect]
     Indication: PULMONARY HYPERTENSION
     Dosage: 20 MG, 3X/DAY
     Dates: start: 20110302
  2. REVATIO [Suspect]
     Dosage: 5 MG, 3X/DAY (TID)
     Route: 048

REACTIONS (2)
  - Fall [Unknown]
  - Dizziness [Unknown]
